FAERS Safety Report 8115057-4 (Version None)
Quarter: 2012Q1

REPORT INFORMATION
  Report Type: 
  Country: None (occurrence: None)
  Receive Date: 20120206
  Receipt Date: 20120201
  Transmission Date: 20120608
  Serious: Yes (Death)
  Sender: FDA-Public Use
  Company Number: US-UCBSA-042060

PATIENT
  Age: 85 Year
  Sex: Male
  Weight: 83.4 kg

DRUGS (8)
  1. CARBIDOPA AND LEVODOPA [Concomitant]
     Dosage: 50/200G
  2. RASAGILINE [Concomitant]
     Route: 048
  3. ASPIRIN [Concomitant]
     Route: 048
  4. ROTIGOTINE [Suspect]
     Indication: PARKINSON'S DISEASE
     Route: 062
     Dates: start: 20090106, end: 20110924
  5. LOVASTATIN [Concomitant]
     Route: 048
  6. CARBIDOPA AND LEVODOPA [Concomitant]
     Dosage: 25/100G
  7. EXELON [Concomitant]
     Dosage: PATCH
  8. WELLBUTRIN XL [Concomitant]

REACTIONS (1)
  - CARDIO-RESPIRATORY ARREST [None]
